FAERS Safety Report 20356939 (Version 1)
Quarter: 2022Q1

REPORT INFORMATION
  Report Type: Spontaneous
  Country: US (occurrence: US)
  Receive Date: 20220120
  Receipt Date: 20220120
  Transmission Date: 20220423
  Serious: No
  Sender: FDA-Public Use
  Company Number: US-SA-SAC20220119000034

PATIENT

DRUGS (3)
  1. JEVTANA [Suspect]
     Active Substance: CABAZITAXEL
     Dosage: 280CC/HR
  2. JEVTANA [Suspect]
     Active Substance: CABAZITAXEL
     Dosage: 140CC/HR
  3. JEVTANA [Suspect]
     Active Substance: CABAZITAXEL
     Dosage: 140CC/HR

REACTIONS (1)
  - Infusion related reaction [Unknown]
